FAERS Safety Report 23276524 (Version 1)
Quarter: 2023Q4

REPORT INFORMATION
  Report Type: Spontaneous
  Country: None (occurrence: CA)
  Receive Date: 20231208
  Receipt Date: 20231208
  Transmission Date: 20240110
  Serious: Yes (Disabling)
  Sender: FDA-Public Use
  Company Number: CA-B.Braun Medical Inc.-2149137

PATIENT
  Age: 66 Year
  Sex: Male
  Weight: 89 kg

DRUGS (12)
  1. HEPARIN SODIUM IN DEXTROSE [Suspect]
     Active Substance: HEPARIN SODIUM
     Indication: Acute myocardial infarction
     Route: 042
  2. CLOPIDOGREL [Suspect]
     Active Substance: CLOPIDOGREL BISULFATE
  3. ACETAMINOPHEN [Concomitant]
     Active Substance: ACETAMINOPHEN
  4. AMIODARONE [Concomitant]
     Active Substance: AMIODARONE
  5. CLOBAZAM [Concomitant]
     Active Substance: CLOBAZAM
  6. HYDROCORTISONE VALERATE [Concomitant]
     Active Substance: HYDROCORTISONE VALERATE
  7. LAMOTRIGINE [Concomitant]
     Active Substance: LAMOTRIGINE
  8. MORPHINE [Concomitant]
     Active Substance: MORPHINE
  9. PREGABALIN [Concomitant]
     Active Substance: PREGABALIN
  10. RIVAROXABAN [Concomitant]
     Active Substance: RIVAROXABAN
  11. ROSUVASTATIN [Concomitant]
     Active Substance: ROSUVASTATIN
  12. SERTRALINE [Concomitant]
     Active Substance: SERTRALINE HYDROCHLORIDE

REACTIONS (4)
  - Subdural haematoma [None]
  - Cerebral mass effect [None]
  - Paralysis [None]
  - Somnolence [None]
